FAERS Safety Report 6091630-2 (Version None)
Quarter: 2009Q1

REPORT INFORMATION
  Report Type: 
  Country: None (occurrence: None)
  Receive Date: 20090225
  Receipt Date: 20080310
  Transmission Date: 20090719
  Serious: No
  Sender: FDA-Public Use
  Company Number: A0714318A

PATIENT
  Age: 43 Year
  Sex: Male

DRUGS (3)
  1. VALTREX [Suspect]
     Indication: GENITAL HERPES
     Dosage: 1G PER DAY
     Route: 048
     Dates: start: 20080101
  2. NORCO [Concomitant]
  3. SOMA [Concomitant]

REACTIONS (2)
  - CONTUSION [None]
  - DRUG INEFFECTIVE [None]
